FAERS Safety Report 10175972 (Version 2)
Quarter: 2014Q2

REPORT INFORMATION
  Report Type: Spontaneous
  Country: IT (occurrence: IT)
  Receive Date: 20140516
  Receipt Date: 20140527
  Transmission Date: 20141212
  Serious: Yes (Life-Threatening)
  Sender: FDA-Public Use
  Company Number: IT-ACCORD-023719

PATIENT
  Age: 53 Year
  Sex: Female

DRUGS (4)
  1. LEPONEX [Concomitant]
  2. EUTIROX [Concomitant]
     Dosage: 75 ^MCG TABLETS^ 50 TABLETS.
  3. TAVOR [Concomitant]
  4. PACLITAXEL/PACLITAXEL LIPOSOME [Suspect]
     Indication: BREAST CANCER
     Route: 042
     Dates: start: 20140408, end: 20140408

REACTIONS (4)
  - Pruritus [Recovered/Resolved]
  - Rash [Recovered/Resolved]
  - Cough [Recovered/Resolved]
  - Respiratory failure [Recovered/Resolved]
